FAERS Safety Report 5142806-X (Version None)
Quarter: 2006Q4

REPORT INFORMATION
  Report Type: 
  Country: None (occurrence: None)
  Receive Date: 20061102
  Receipt Date: 20061026
  Transmission Date: 20070319
  Serious: Yes (Death, Hospitalization)
  Sender: FDA-Public Use
  Company Number: CH-MERCK-0610USA13893

PATIENT
  Age: 74 Year
  Sex: Female

DRUGS (1)
  1. DECADRON [Suspect]
     Indication: TEMPORAL ARTERITIS
     Route: 065

REACTIONS (5)
  - ASPERGILLOSIS [None]
  - CYTOMEGALOVIRUS TEST [None]
  - HERPES OESOPHAGITIS [None]
  - PNEUMOCYSTIS JIROVECI INFECTION [None]
  - PNEUMONIA KLEBSIELLA [None]
